FAERS Safety Report 4997894-8 (Version None)
Quarter: 2006Q2

REPORT INFORMATION
  Report Type: 
  Country: None (occurrence: None)
  Receive Date: 20060508
  Receipt Date: 20060425
  Transmission Date: 20061013
  Serious: Yes (Hospitalization, Other)
  Sender: FDA-Public Use
  Company Number: 2005161855

PATIENT
  Age: 55 Year
  Sex: Male
  Weight: 69.4003 kg

DRUGS (6)
  1. SUTENT [Suspect]
     Indication: RENAL CELL CARCINOMA STAGE UNSPECIFIED
     Dosage: 50 MG, DAILY FOR 28 DAYS EVERY 6 WEEKS, ORAL
     Route: 048
     Dates: start: 20051108
  2. ZOSYN [Suspect]
     Indication: PERITONITIS
  3. OXYCONTIN [Concomitant]
  4. PERCOCET [Concomitant]
  5. COLACE (DOCUSATE SODIUM) [Concomitant]
  6. PROTONIX [Concomitant]

REACTIONS (8)
  - APPENDICITIS [None]
  - APPENDICITIS PERFORATED [None]
  - BACTEROIDES INFECTION [None]
  - CLOSTRIDIAL INFECTION [None]
  - ESCHERICHIA INFECTION [None]
  - HYPERBILIRUBINAEMIA [None]
  - PERITONITIS [None]
  - POST PROCEDURAL COMPLICATION [None]
